FAERS Safety Report 7719020-4 (Version None)
Quarter: 2011Q3

REPORT INFORMATION
  Report Type: 
  Country: None (occurrence: None)
  Receive Date: 20110830
  Receipt Date: 20110819
  Transmission Date: 20111222
  Serious: Yes (Other)
  Sender: FDA-Public Use
  Company Number: MA-GLAXOSMITHKLINE-Z0000666B

PATIENT
  Sex: Female
  Weight: 64 kg

DRUGS (2)
  1. LAPATINIB [Suspect]
     Indication: INFLAMMATORY CARCINOMA OF THE BREAST
     Dosage: 1500MG PER DAY
     Route: 048
     Dates: start: 20080802
  2. VOTRIENT [Suspect]
     Indication: INFLAMMATORY CARCINOMA OF THE BREAST
     Dosage: 400MG PER DAY
     Route: 048
     Dates: start: 20080802

REACTIONS (1)
  - NEUTROPENIA [None]
